FAERS Safety Report 13237022 (Version 1)
Quarter: 2017Q1

REPORT INFORMATION
  Report Type: Spontaneous
  Country: NO (occurrence: NO)
  Receive Date: 20170215
  Receipt Date: 20170215
  Transmission Date: 20170428
  Serious: Yes (Hospitalization)
  Sender: FDA-Public Use
  Company Number: NO-SA-2017SA023925

PATIENT
  Age: 31 Year
  Sex: Female

DRUGS (1)
  1. AUBAGIO [Suspect]
     Active Substance: TERIFLUNOMIDE
     Indication: MULTIPLE SCLEROSIS
     Route: 048
     Dates: start: 20161014, end: 20170112

REACTIONS (3)
  - Fatigue [Recovering/Resolving]
  - Anaemia [Recovering/Resolving]
  - Menorrhagia [Recovered/Resolved]

NARRATIVE: CASE EVENT DATE: 201612
